FAERS Safety Report 23342163 (Version 1)
Quarter: 2023Q4

REPORT INFORMATION
  Report Type: Spontaneous
  Country: FR (occurrence: FR)
  Receive Date: 20231227
  Receipt Date: 20231227
  Transmission Date: 20240109
  Serious: Yes (Hospitalization)
  Sender: FDA-Public Use
  Company Number: None

PATIENT
  Age: 75 Year
  Sex: Female
  Weight: 65 kg

DRUGS (26)
  1. PIPERACILLIN SODIUM\TAZOBACTAM SODIUM [Suspect]
     Active Substance: PIPERACILLIN SODIUM\TAZOBACTAM SODIUM
     Dosage: UNK
     Route: 042
     Dates: start: 20231110, end: 20231115
  2. VANCOMYCIN [Suspect]
     Active Substance: VANCOMYCIN
     Indication: Product used for unknown indication
     Dosage: UNK
     Route: 042
     Dates: start: 20231107, end: 20231110
  3. AMIKACIN [Suspect]
     Active Substance: AMIKACIN
     Indication: Product used for unknown indication
     Dosage: UNK
     Route: 042
     Dates: start: 20231107, end: 20231107
  4. PROPOFOL [Suspect]
     Active Substance: PROPOFOL
     Indication: Sedation
     Dosage: UNK
     Route: 042
     Dates: start: 20231106
  5. SUFENTANIL [Suspect]
     Active Substance: SUFENTANIL
     Indication: Sedation
     Dosage: UNK
     Route: 042
     Dates: start: 20231106
  6. INSULIN LISPRO [Suspect]
     Active Substance: INSULIN LISPRO
     Dosage: UNK
     Route: 042
     Dates: start: 20231106
  7. MEROPENEM [Suspect]
     Active Substance: MEROPENEM
     Indication: Pneumonia
     Dosage: UNK
     Route: 042
     Dates: start: 20231107, end: 20231109
  8. HEPARIN [Suspect]
     Active Substance: HEPARIN SODIUM
     Indication: Product used for unknown indication
     Dosage: UNK
     Route: 042
     Dates: start: 20231106
  9. IODINE [Suspect]
     Active Substance: IODINE
     Dosage: UNK
     Route: 042
     Dates: start: 20231108, end: 20231108
  10. NOREPINEPHRINE BITARTRATE [Suspect]
     Active Substance: NOREPINEPHRINE BITARTRATE
     Indication: Hypotension
     Dosage: UNK
     Route: 042
     Dates: start: 20231106
  11. RACECADOTRIL [Suspect]
     Active Substance: RACECADOTRIL
     Dosage: UNK
     Dates: start: 20231118
  12. LIPTRUZET [Concomitant]
     Active Substance: ATORVASTATIN CALCIUM\EZETIMIBE
     Dosage: 10 MG, QD
  13. BISOPROLOL [Concomitant]
     Active Substance: BISOPROLOL\BISOPROLOL FUMARATE
     Dosage: 2.5 MG, QD: 1-0-0
  14. RAMIPRIL [Concomitant]
     Active Substance: RAMIPRIL
     Dosage: UNK: 1.5-0-0
  15. ASPIRIN [Concomitant]
     Active Substance: ASPIRIN
     Dosage: 100 MG, QD: 1-0-0
  16. VORTIOXETINE DL-LACTATE [Concomitant]
     Active Substance: VORTIOXETINE DL-LACTATE
     Dosage: 5 MG, QD: 1-0-0
  17. AMOROLFINE [Concomitant]
     Active Substance: AMOROLFINE
     Dosage: UNK, QW
  18. LEFLUNOMIDE [Concomitant]
     Active Substance: LEFLUNOMIDE
     Dosage: 20 MG, QD
  19. FOLIC ACID [Concomitant]
     Active Substance: FOLIC ACID
     Dosage: 2 DF, QW
  20. DAFALGAN [Concomitant]
     Active Substance: ACETAMINOPHEN
     Dosage: 3 G, QD
  21. ACTONEL [Concomitant]
     Active Substance: RISEDRONATE SODIUM
     Dosage: 35 MG, QD: 1-0-0
  22. TRAMADOL [Concomitant]
     Active Substance: TRAMADOL\TRAMADOL HYDROCHLORIDE
     Dosage: 50 MG, QD: 0-0-1
  23. ACYCLOVIR [Concomitant]
     Active Substance: ACYCLOVIR
     Dosage: UNK
     Dates: start: 20231123
  24. PANTOPRAZOLE [Concomitant]
     Active Substance: PANTOPRAZOLE
     Dosage: UNK
     Dates: start: 20231123
  25. CEFEPIME [Concomitant]
     Active Substance: CEFEPIME HYDROCHLORIDE
     Dosage: UNK
     Dates: start: 20231124
  26. AMICLINE [Concomitant]
     Dosage: UNK
     Dates: start: 20231124

REACTIONS (1)
  - Rash maculo-papular [Not Recovered/Not Resolved]

NARRATIVE: CASE EVENT DATE: 20231120
